FAERS Safety Report 15130047 (Version 3)
Quarter: 2018Q4

REPORT INFORMATION
  Report Type: Report from Study
  Country: FR (occurrence: FR)
  Receive Date: 20180711
  Receipt Date: 20181024
  Transmission Date: 20190204
  Serious: Yes (Death, Other)
  Sender: FDA-Public Use
  Company Number: FR-JAZZ-2018-FR-010590

PATIENT

DRUGS (1)
  1. DEFITELIO [Suspect]
     Active Substance: DEFIBROTIDE SODIUM
     Indication: VENOOCCLUSIVE DISEASE
     Dosage: 25 MG/KG, QD
     Dates: start: 20160628, end: 20160704

REACTIONS (4)
  - Toxoplasmosis [Unknown]
  - Cytomegalovirus infection [Unknown]
  - Myelofibrosis [Fatal]
  - Disease progression [Fatal]

NARRATIVE: CASE EVENT DATE: 201606
